FAERS Safety Report 5138637-7 (Version None)
Quarter: 2006Q4

REPORT INFORMATION
  Report Type: 
  Country: None (occurrence: None)
  Receive Date: 20061030
  Receipt Date: 20061024
  Transmission Date: 20070319
  Serious: Yes (Other)
  Sender: FDA-Public Use
  Company Number: ZA-GLAXOSMITHKLINE-B0444229A

PATIENT
  Age: 32 Year
  Sex: Female

DRUGS (2)
  1. COMBIVIR [Suspect]
     Route: 048
  2. SUSTIVA [Suspect]
     Route: 048
     Dates: start: 20050131, end: 20060301

REACTIONS (1)
  - ABORTION INDUCED [None]
